FAERS Safety Report 25714242 (Version 2)
Quarter: 2025Q3

REPORT INFORMATION
  Report Type: Spontaneous
  Country: CN (occurrence: CN)
  Receive Date: 20250822
  Receipt Date: 20250902
  Transmission Date: 20251020
  Serious: Yes (Hospitalization, Other)
  Sender: Kenvue
  Company Number: CN-KENVUE-20250807069

PATIENT

DRUGS (5)
  1. CHILDRENS MOTRIN [Suspect]
     Active Substance: IBUPROFEN
     Indication: Pyrexia
     Dosage: 4 MILLILITER, FOUR TIME A DAY (EVERY 6 HOURS)
     Route: 048
     Dates: start: 20250803
  2. CHILDRENS MOTRIN [Suspect]
     Active Substance: IBUPROFEN
     Indication: Upper respiratory tract infection
  3. CEFDINIR [Suspect]
     Active Substance: CEFDINIR
     Indication: Upper respiratory tract infection
     Dosage: 50 MILLIGRAM, THRICE A DAY
     Route: 048
     Dates: start: 20250803, end: 20250805
  4. MEZLOCILLIN SODIUM [Concomitant]
     Active Substance: MEZLOCILLIN SODIUM
     Indication: Anti-infective therapy
     Dosage: 1.0 GRAM, TWICE A DAY
     Route: 041
     Dates: start: 20250805
  5. SODIUM CHLORIDE [Concomitant]
     Active Substance: SODIUM CHLORIDE
     Indication: Anti-infective therapy
     Dosage: 100 MILLILITER, TWICE A DAY
     Route: 041
     Dates: start: 20250805

REACTIONS (2)
  - White blood cell count decreased [Recovered/Resolved]
  - Therapeutic product effect incomplete [Unknown]

NARRATIVE: CASE EVENT DATE: 20250801
